FAERS Safety Report 12492568 (Version 1)
Quarter: 2016Q2

REPORT INFORMATION
  Report Type: Spontaneous
  Country: US (occurrence: None)
  Receive Date: 20160622
  Receipt Date: 20160622
  Transmission Date: 20160815
  Serious: No
  Sender: FDA-Public Use
  Company Number: None

PATIENT
  Age: 60 Year
  Sex: Male

DRUGS (3)
  1. PHOSPHA [Concomitant]
  2. LOPRESSOR [Concomitant]
     Active Substance: METOPROLOL TARTRATE
  3. SPRYCEL [Suspect]
     Active Substance: DASATINIB
     Indication: DRUG THERAPY
     Route: 048
     Dates: start: 201603

REACTIONS (2)
  - Blood pressure increased [None]
  - Oedema [None]

NARRATIVE: CASE EVENT DATE: 2016
